FAERS Safety Report 14560093 (Version 1)
Quarter: 2018Q1

REPORT INFORMATION
  Report Type: Report from Study
  Country: US (occurrence: US)
  Receive Date: 20180221
  Receipt Date: 20180221
  Transmission Date: 20180509
  Serious: Yes (Hospitalization, Other)
  Sender: FDA-Public Use
  Company Number: US-AMGEN-USASL2018021556

PATIENT
  Age: 75 Year
  Sex: Male

DRUGS (3)
  1. REPATHA [Suspect]
     Active Substance: EVOLOCUMAB
     Indication: LOW DENSITY LIPOPROTEIN ABNORMAL
  2. REPATHA [Suspect]
     Active Substance: EVOLOCUMAB
     Indication: BLOOD CHOLESTEROL INCREASED
     Dosage: 140 MG, Q2WK
     Route: 065
  3. REPATHA [Suspect]
     Active Substance: EVOLOCUMAB
     Indication: HYPERLIPIDAEMIA

REACTIONS (10)
  - Skin ulcer [Unknown]
  - Sleep disorder due to a general medical condition [Unknown]
  - Blood glucose decreased [Recovering/Resolving]
  - Cellulitis [Unknown]
  - Feeling cold [Unknown]
  - Blood electrolytes decreased [Unknown]
  - Limb injury [Unknown]
  - Syncope [Unknown]
  - Blood phosphorus decreased [Unknown]
  - Sepsis [Unknown]

NARRATIVE: CASE EVENT DATE: 201801
